FAERS Safety Report 8396567-1 (Version None)
Quarter: 2012Q2

REPORT INFORMATION
  Report Type: 
  Country: None (occurrence: None)
  Receive Date: 20120530
  Receipt Date: 20120522
  Transmission Date: 20120825
  Serious: Yes (Other)
  Sender: FDA-Public Use
  Company Number: US-JNJFOC-20120517320

PATIENT
  Sex: Male

DRUGS (2)
  1. RISPERDAL [Suspect]
     Indication: PRODUCT USED FOR UNKNOWN INDICATION
     Route: 048
  2. RISPERIDONE [Suspect]
     Indication: PRODUCT USED FOR UNKNOWN INDICATION
     Route: 048

REACTIONS (10)
  - PAIN [None]
  - PNEUMONIA [None]
  - TARDIVE DYSKINESIA [None]
  - PARKINSON'S DISEASE [None]
  - ASPIRATION [None]
  - DIABETES MELLITUS [None]
  - SPINAL CORD COMPRESSION [None]
  - FEELING ABNORMAL [None]
  - GYNAECOMASTIA [None]
  - VOMITING [None]
